FAERS Safety Report 6802997-9 (Version None)
Quarter: 2010Q2

REPORT INFORMATION
  Report Type: 
  Country: None (occurrence: None)
  Receive Date: 20100628
  Receipt Date: 20100527
  Transmission Date: 20101027
  Serious: No
  Sender: FDA-Public Use
  Company Number: US-BAYER-201016251BCC

PATIENT
  Age: 67 Year
  Sex: Female
  Weight: 73 kg

DRUGS (7)
  1. ALEVE [Suspect]
     Indication: ARTHRALGIA
     Dosage: TOTAL DAILY DOSE: 880 MG  UNIT DOSE: 220 MG
     Route: 048
     Dates: start: 20100501
  2. LAVOXILLE [Concomitant]
  3. LISINOPRIL [Concomitant]
  4. CALTRATE [Concomitant]
  5. TRIVETA [Concomitant]
  6. FOLIC ACID [Concomitant]
  7. BENERVA [Concomitant]

REACTIONS (1)
  - BLOOD TEST ABNORMAL [None]
